FAERS Safety Report 17874745 (Version 1)
Quarter: 2020Q2

REPORT INFORMATION
  Report Type: Spontaneous
  Country: GB (occurrence: GB)
  Receive Date: 20200609
  Receipt Date: 20200609
  Transmission Date: 20200714
  Serious: Yes (Other)
  Sender: FDA-Public Use
  Company Number: NVSC2020GB157498

PATIENT
  Age: 77 Year
  Sex: Male

DRUGS (10)
  1. PREDNISOLONE. [Suspect]
     Active Substance: PREDNISOLONE
     Indication: PRODUCT USED FOR UNKNOWN INDICATION
     Dosage: 1 PERCENTILE FOUR TIMES/DAY, POST-OPERATIVELY FOR 4 WEEKS
     Route: 065
  2. MITOMYCIN. [Suspect]
     Active Substance: MITOMYCIN
     Indication: PROPHYLAXIS
     Dosage: 0.01 PERCENT IN 0.1 ML, WAS INJECTED FOLLOWING ADEQUATE ANAESTHESIA
     Route: 057
  3. CEFUROXIME. [Suspect]
     Active Substance: CEFUROXIME
     Indication: PRODUCT USED FOR UNKNOWN INDICATION
     Dosage: 0.1 ML (3 MG IN 0.3 MLS)
     Route: 031
  4. MIOCHOL E [Suspect]
     Active Substance: ACETYLCHOLINE CHLORIDE
     Indication: PUPIL CONSTRICTION PROCEDURE
     Dosage: UNK
     Route: 065
  5. HYALURONIDASE [Suspect]
     Active Substance: HYALURONIDASE
     Indication: LOCAL ANAESTHESIA
     Dosage: UNK
     Route: 065
  6. LIDOCAINE. [Suspect]
     Active Substance: LIDOCAINE
     Indication: LOCAL ANAESTHESIA
     Dosage: 3-5 MLS
     Route: 065
  7. HEALON GV [Suspect]
     Active Substance: HYALURONATE SODIUM
     Indication: PRODUCT USED FOR UNKNOWN INDICATION
     Dosage: UNK
     Route: 031
  8. DEXAMETHASONE. [Suspect]
     Active Substance: DEXAMETHASONE
     Indication: PRODUCT USED FOR UNKNOWN INDICATION
     Dosage: 1 ML (3.3. MG IN 1 ML)
     Route: 057
  9. MITOMYCIN. [Suspect]
     Active Substance: MITOMYCIN
     Indication: IMPLANT SITE SCAR
  10. CHLORAMPHENICOL [Suspect]
     Active Substance: CHLORAMPHENICOL
     Indication: PRODUCT USED FOR UNKNOWN INDICATION
     Dosage: 0.5 PERCENT FOUR TIMES/DAY POST-OPERATIVELY FOR 4 WEEKS
     Route: 065

REACTIONS (8)
  - Hyphaema [Unknown]
  - Device breakage [Unknown]
  - Conjunctival bleb [Unknown]
  - Product use in unapproved indication [Recovered/Resolved]
  - Scar [Unknown]
  - Intentional product use issue [Recovered/Resolved]
  - Vascular stent stenosis [Unknown]
  - Conjunctival haemorrhage [Unknown]
